FAERS Safety Report 10237380 (Version 1)
Quarter: 2014Q2

REPORT INFORMATION
  Report Type: Spontaneous
  Country: RU (occurrence: RU)
  Receive Date: 20140614
  Receipt Date: 20140614
  Transmission Date: 20141212
  Serious: Yes (Other)
  Sender: FDA-Public Use
  Company Number: RU-ALLERGAN-1412938US

PATIENT
  Age: 80 Year
  Sex: Male

DRUGS (3)
  1. ALPHAGAN P [Suspect]
     Indication: GLAUCOMA
     Dosage: INSTILL THREE TIMES A DAY
     Route: 047
  2. GANFORT [Concomitant]
  3. AZARGA [Concomitant]

REACTIONS (3)
  - Loss of consciousness [Recovering/Resolving]
  - Faecal incontinence [Recovering/Resolving]
  - Hypotension [Recovering/Resolving]
